FAERS Safety Report 13785440 (Version 1)
Quarter: 2017Q3

REPORT INFORMATION
  Report Type: Spontaneous
  Country: US (occurrence: US)
  Receive Date: 20170724
  Receipt Date: 20170724
  Transmission Date: 20171127
  Serious: Yes (Other)
  Sender: FDA-Public Use
  Company Number: None

PATIENT
  Age: 70 Year
  Sex: Male
  Weight: 67.5 kg

DRUGS (1)
  1. FLUOCINONIDE. [Suspect]
     Active Substance: FLUOCINONIDE
     Indication: DERMATOMYOSITIS
     Dates: start: 20170706, end: 20170723

REACTIONS (3)
  - Application site pain [None]
  - Application site erythema [None]
  - Product formulation issue [None]

NARRATIVE: CASE EVENT DATE: 20170723
